FAERS Safety Report 7311449-1 (Version None)
Quarter: 2011Q1

REPORT INFORMATION
  Report Type: 
  Country: None (occurrence: None)
  Receive Date: 20110224
  Receipt Date: 20110218
  Transmission Date: 20110831
  Serious: Yes (Life-Threatening, Hospitalization, Other)
  Sender: FDA-Public Use
  Company Number: DE-JNJFOC-20110100685

PATIENT
  Sex: Female
  Weight: 78 kg

DRUGS (6)
  1. SELEN [Concomitant]
     Indication: ILL-DEFINED DISORDER
     Route: 065
  2. SUMATRIPTAN [Concomitant]
     Indication: MIGRAINE PROPHYLAXIS
     Route: 065
  3. TOPAMAX [Suspect]
     Indication: MIGRAINE PROPHYLAXIS
     Route: 048
  4. TOPAMAX [Suspect]
     Route: 048
  5. NON STEROIDAL ANTI-INFLAMMATORY DRUGS [Suspect]
     Indication: MIGRAINE PROPHYLAXIS
     Route: 048
  6. LEVOTHYROXINE SODIUM [Concomitant]
     Indication: PRODUCT USED FOR UNKNOWN INDICATION
     Route: 065

REACTIONS (3)
  - SUBACUTE HEPATIC FAILURE [None]
  - DRUG INTOLERANCE [None]
  - HEPATITIS [None]
